FAERS Safety Report 11030034 (Version 2)
Quarter: 2015Q2

REPORT INFORMATION
  Report Type: Spontaneous
  Country: US (occurrence: US)
  Receive Date: 20150415
  Receipt Date: 20150428
  Transmission Date: 20150821
  Serious: No
  Sender: FDA-Public Use
  Company Number: US-BIOGENIDEC-2015BI044337

PATIENT
  Age: 62 Year
  Sex: Female
  Weight: 63 kg

DRUGS (24)
  1. ISOSORBIDE MONONITRATE. [Concomitant]
     Active Substance: ISOSORBIDE MONONITRATE
  2. LORAZEPAM. [Concomitant]
     Active Substance: LORAZEPAM
  3. VITAMIN K [Concomitant]
     Active Substance: PHYTONADIONE
  4. VITAMIN D3 [Concomitant]
     Active Substance: CHOLECALCIFEROL
  5. FENTANYL. [Concomitant]
     Active Substance: FENTANYL
     Route: 062
  6. OXYBUTYNIN CHLORIDE. [Concomitant]
     Active Substance: OXYBUTYNIN CHLORIDE
  7. ASPIRIN. [Concomitant]
     Active Substance: ASPIRIN
  8. SPIRONOLACTONE. [Concomitant]
     Active Substance: SPIRONOLACTONE
  9. PROVIGIL [Concomitant]
     Active Substance: MODAFINIL
  10. PULMICORT TURBUHALER [Concomitant]
     Active Substance: BUDESONIDE
  11. TECFIDERA [Suspect]
     Active Substance: DIMETHYL FUMARATE
     Indication: MULTIPLE SCLEROSIS
     Route: 048
     Dates: start: 20150212
  12. TECFIDERA [Suspect]
     Active Substance: DIMETHYL FUMARATE
     Indication: MULTIPLE SCLEROSIS
     Dates: start: 20150305, end: 20150328
  13. GABAPENTIN. [Concomitant]
     Active Substance: GABAPENTIN
  14. AMPYRA [Concomitant]
     Active Substance: DALFAMPRIDINE
     Indication: GAIT DISTURBANCE
     Route: 048
     Dates: start: 20150212
  15. AMLODIPINE [Concomitant]
     Active Substance: AMLODIPINE BESYLATE
  16. LASIX [Concomitant]
     Active Substance: FUROSEMIDE
  17. VITAMIN B12 [Concomitant]
     Active Substance: CYANOCOBALAMIN
  18. NORCO [Concomitant]
     Active Substance: ACETAMINOPHEN\HYDROCODONE BITARTRATE
  19. POTASSIUM CHLORIDE. [Concomitant]
     Active Substance: POTASSIUM CHLORIDE
  20. WELLBUTRIN [Concomitant]
     Active Substance: BUPROPION HYDROCHLORIDE
  21. PROVENTIL [Concomitant]
     Active Substance: ALBUTEROL
  22. BETAMETHASONE DIPROPIONATE. [Concomitant]
     Active Substance: BETAMETHASONE DIPROPIONATE
  23. ESTRADIOL. [Concomitant]
     Active Substance: ESTRADIOL
  24. BACLOFEN. [Concomitant]
     Active Substance: BACLOFEN

REACTIONS (9)
  - Peripheral swelling [Not Recovered/Not Resolved]
  - Diarrhoea [Not Recovered/Not Resolved]
  - Hyperhidrosis [Unknown]
  - Fatigue [Unknown]
  - Influenza [Unknown]
  - Vomiting [Recovered/Resolved]
  - Pyrexia [Unknown]
  - Weight increased [Unknown]
  - Nausea [Recovered/Resolved]

NARRATIVE: CASE EVENT DATE: 201503
